FAERS Safety Report 8952667 (Version 1)
Quarter: 2012Q4

REPORT INFORMATION
  Report Type: 
  Country: US (occurrence: US)
  Receive Date: 20121205
  Receipt Date: 20121205
  Transmission Date: 20130627
  Serious: No
  Sender: FDA-Public Use
  Company Number: US-009507513-1212USA000523

PATIENT
  Sex: Male

DRUGS (4)
  1. JANUVIA [Suspect]
     Indication: TYPE 2 DIABETES MELLITUS
     Dosage: 100 taken once daily between 12-2 PM
     Route: 048
     Dates: start: 2008
  2. METFORMIN [Concomitant]
  3. LIPITOR [Concomitant]
  4. GLIPIZIDE [Concomitant]

REACTIONS (1)
  - Dizziness [Unknown]
